FAERS Safety Report 5258335-9 (Version None)
Quarter: 2007Q1

REPORT INFORMATION
  Report Type: 
  Country: None (occurrence: None)
  Receive Date: 20070308
  Receipt Date: 20070226
  Transmission Date: 20070707
  Serious: Yes (Life-Threatening, Hospitalization, Other)
  Sender: FDA-Public Use
  Company Number: DE-JNJFOC-20070200370

PATIENT
  Sex: Female
  Weight: 70 kg

DRUGS (1)
  1. RISPERDAL [Suspect]
     Indication: DELUSIONAL DISORDER, PERSECUTORY TYPE
     Route: 065

REACTIONS (2)
  - BLOOD PROLACTIN INCREASED [None]
  - BREAST CANCER [None]
